FAERS Safety Report 9555889 (Version 1)
Quarter: 2013Q3

REPORT INFORMATION
  Report Type: Spontaneous
  Country: US (occurrence: None)
  Receive Date: 20130815
  Receipt Date: 20130815
  Transmission Date: 20140515
  Serious: Yes (Hospitalization)
  Sender: FDA-Public Use
  Company Number: ADR-2013-00927

PATIENT
  Age: 45 Year
  Sex: Male

DRUGS (2)
  1. BACLOFEN INTRATHECAL [Suspect]
     Indication: BACK PAIN
  2. DILAUDID INTRATHECAL (HYDROMORPHONE) [Concomitant]

REACTIONS (3)
  - Depressed level of consciousness [None]
  - Intracranial hypotension [None]
  - Overdose [None]
